FAERS Safety Report 13663119 (Version 1)
Quarter: 2017Q2

REPORT INFORMATION
  Report Type: Spontaneous
  Country: BR (occurrence: BR)
  Receive Date: 20170619
  Receipt Date: 20170619
  Transmission Date: 20170830
  Serious: Yes (Other)
  Sender: FDA-Public Use
  Company Number: BR-ASTRAZENECA-2017SE62319

PATIENT
  Sex: Male

DRUGS (3)
  1. ROSUCOR [Concomitant]
     Active Substance: ROSUVASTATIN CALCIUM
  2. VASOGARD [Concomitant]
     Active Substance: CILOSTAZOL
  3. ATACAND [Suspect]
     Active Substance: CANDESARTAN CILEXETIL
     Indication: HYPERTENSION
     Dosage: EVERY DAY
     Route: 048

REACTIONS (3)
  - Nephrolithiasis [Recovered/Resolved]
  - Urinary tract obstruction [Unknown]
  - Blood pressure inadequately controlled [Recovered/Resolved]
